FAERS Safety Report 6621727-7 (Version None)
Quarter: 2010Q1

REPORT INFORMATION
  Report Type: 
  Country: None (occurrence: None)
  Receive Date: 20100309
  Receipt Date: 20100226
  Transmission Date: 20100710
  Serious: Yes (Hospitalization)
  Sender: FDA-Public Use
  Company Number: JP-AMGEN-US397584

PATIENT
  Age: 49 Year
  Sex: Male

DRUGS (2)
  1. ENBREL [Suspect]
     Indication: RHEUMATOID ARTHRITIS
     Route: 058
     Dates: start: 20090306, end: 20100215
  2. METHOTREXATE [Suspect]
     Dosage: 2 MG (FREQUENCY NOT SPECIFIED)
     Route: 048
     Dates: start: 20080401, end: 20100205

REACTIONS (2)
  - LYMPHOMA [None]
  - LYMPHOPROLIFERATIVE DISORDER [None]
